FAERS Safety Report 5951812-4 (Version None)
Quarter: 2008Q4

REPORT INFORMATION
  Report Type: 
  Country: None (occurrence: None)
  Receive Date: 20081113
  Receipt Date: 20081111
  Transmission Date: 20090506
  Serious: Yes (Other)
  Sender: FDA-Public Use
  Company Number: A0755796A

PATIENT
  Age: 27 Year
  Sex: Female

DRUGS (2)
  1. VALTREX [Suspect]
     Indication: GENITAL HERPES
     Route: 048
     Dates: start: 20071201
  2. PREDNISONE TAB [Concomitant]
     Indication: DRUG USE FOR UNKNOWN INDICATION
     Route: 065

REACTIONS (1)
  - ANGIOEDEMA [None]
